FAERS Safety Report 5472987-X (Version None)
Quarter: 2007Q3

REPORT INFORMATION
  Report Type: 
  Country: None (occurrence: None)
  Receive Date: 20070926
  Receipt Date: 20070913
  Transmission Date: 20080115
  Serious: Yes (Other)
  Sender: FDA-Public Use
  Company Number: L07-FRA-05160-01

PATIENT
  Sex: Female

DRUGS (4)
  1. CITALOPRAM HYDROBROMIDE [Suspect]
  2. VALIUM [Suspect]
  3. OXAZEPAM [Concomitant]
  4. ALCOHOL [Concomitant]

REACTIONS (4)
  - AMNESIA [None]
  - DRUG INTERACTION [None]
  - SOMNOLENCE [None]
  - VICTIM OF SEXUAL ABUSE [None]
